FAERS Safety Report 8883252 (Version 1)
Quarter: 2012Q4

REPORT INFORMATION
  Report Type: 
  Country: US (occurrence: US)
  Receive Date: 20121102
  Receipt Date: 20121102
  Transmission Date: 20130627
  Serious: Yes (Hospitalization)
  Sender: FDA-Public Use
  Company Number: US-GLAXOSMITHKLINE-A0982049A

PATIENT
  Sex: Female

DRUGS (1)
  1. BENLYSTA [Suspect]
     Indication: SYSTEMIC LUPUS ERYTHEMATOSUS
     Route: 042
     Dates: start: 201112

REACTIONS (8)
  - Systemic lupus erythematosus [Unknown]
  - Vomiting [Unknown]
  - Abdominal pain upper [Unknown]
  - Cough [Unknown]
  - Insomnia [Unknown]
  - Pain in extremity [Unknown]
  - Headache [Unknown]
  - Drug ineffective [Unknown]
